FAERS Safety Report 8133820-0 (Version None)
Quarter: 2012Q1

REPORT INFORMATION
  Report Type: 
  Country: None (occurrence: None)
  Receive Date: 20120213
  Receipt Date: 20120213
  Transmission Date: 20120608
  Serious: Yes (Life-Threatening)
  Sender: FDA-Public Use
  Company Number: None

PATIENT
  Age: 61 Year
  Sex: Female
  Weight: 77.11 kg

DRUGS (1)
  1. BENZONATATE [Suspect]
     Indication: COUGH
     Dosage: ONE CAPSULE
     Route: 048
     Dates: start: 20120209, end: 20120210

REACTIONS (4)
  - INSOMNIA [None]
  - HEADACHE [None]
  - HYPERSENSITIVITY [None]
  - NO THERAPEUTIC RESPONSE [None]
